FAERS Safety Report 12610224 (Version 1)
Quarter: 2016Q3

REPORT INFORMATION
  Report Type: Spontaneous
  Country: DE (occurrence: DE)
  Receive Date: 20160801
  Receipt Date: 20160801
  Transmission Date: 20161109
  Serious: Yes (Congenital Anomaly, Other)
  Sender: FDA-Public Use
  Company Number: DE-MYLANLABS-2016M1030273

PATIENT

DRUGS (8)
  1. MCP                                /00041902/ [Concomitant]
     Indication: NAUSEA
     Dosage: UNK
     Route: 064
     Dates: start: 20150529, end: 20150529
  2. GYNVITAL GRAVIDA [Concomitant]
     Active Substance: HERBALS
     Indication: PROPHYLAXIS OF NEURAL TUBE DEFECT
     Dosage: 0.4 MG, QD (0.4 [MG/D ])
     Route: 064
  3. TAVOR (LORAZEPAM) [Concomitant]
     Active Substance: LORAZEPAM
     Indication: PRODUCT USED FOR UNKNOWN INDICATION
     Dosage: 1 MG, QD (1 [MG/D ]/ ONCE)
     Route: 064
  4. SERTRALINE [Suspect]
     Active Substance: SERTRALINE HYDROCHLORIDE
     Indication: ANXIETY DISORDER
     Dosage: 75 MG, QD (75 [MG/D ])
     Route: 064
     Dates: start: 20150223, end: 20150929
  5. OMEPRAZOL                          /00661201/ [Concomitant]
     Active Substance: OMEPRAZOLE
     Indication: PROPHYLAXIS AGAINST GASTROINTESTINAL ULCER
     Dosage: UNK (20 [MG/D ]/ FOR PROPHYLAXIS OR FOR GASTRITIS. CONTRADICTORY STATEMENTS IF PANTOPRAZOL OR OMEPR)
     Route: 064
  6. GLUCOSE [Concomitant]
     Active Substance: DEXTROSE
     Indication: NAUSEA
     Dosage: UNK
     Route: 064
     Dates: start: 20150529, end: 20150529
  7. MIRTAZAPIN [Concomitant]
     Active Substance: MIRTAZAPINE
     Indication: NAUSEA
     Dosage: UNK (IF REQUIRED. IN TOTAL ONLY FOR 3 DAYS.)
     Route: 064
  8. PANTOPRAZOL [Concomitant]
     Active Substance: PANTOPRAZOLE SODIUM
     Indication: GASTRITIS
     Dosage: UNK (FOR PROPHYLAXIS OR FOR GASTRITIS. CONTRADICTORY STATEMENTS IF PANTOPRAZOL OR OMEPRAZOL)
     Route: 064

REACTIONS (6)
  - Neonatal respiratory distress syndrome [Recovered/Resolved]
  - Granulocytopenia neonatal [Not Recovered/Not Resolved]
  - Premature baby [Recovered/Resolved]
  - Congenital skin dimples [Not Recovered/Not Resolved]
  - Tethered cord syndrome [Not Recovered/Not Resolved]
  - Foetal exposure during pregnancy [Unknown]

NARRATIVE: CASE EVENT DATE: 20150929
